FAERS Safety Report 25989429 (Version 1)
Quarter: 2025Q4

REPORT INFORMATION
  Report Type: Spontaneous
  Country: US (occurrence: US)
  Receive Date: 20251103
  Receipt Date: 20251103
  Transmission Date: 20260118
  Serious: No
  Sender: PFIZER
  Company Number: US-PFIZER INC-202500065241

PATIENT
  Age: 90 Year
  Sex: Male

DRUGS (2)
  1. TUKYSA [Suspect]
     Active Substance: TUCATINIB
     Indication: Colorectal cancer
     Dosage: TAKE TWO 150MG TABLETS BY MOUTH TWICE A DAY
     Route: 048
  2. HERCEPTIN HYLECTA [Suspect]
     Active Substance: HYALURONIDASE-OYSK\TRASTUZUMAB
     Indication: Colorectal cancer
     Dosage: UNK

REACTIONS (2)
  - Hypoacusis [Unknown]
  - Off label use [Unknown]

NARRATIVE: CASE EVENT DATE: 20250325
